FAERS Safety Report 7716282-4 (Version None)
Quarter: 2011Q3

REPORT INFORMATION
  Report Type: 
  Country: None (occurrence: None)
  Receive Date: 20110829
  Receipt Date: 20110820
  Transmission Date: 20111222
  Serious: Yes (Death, Hospitalization)
  Sender: FDA-Public Use
  Company Number: US-JNJFOC-20110608217

PATIENT
  Sex: Female
  Weight: 42.64 kg

DRUGS (10)
  1. REMICADE [Suspect]
     Route: 042
     Dates: start: 20101001
  2. MERCAPTOPURINE [Concomitant]
     Indication: COLITIS ULCERATIVE
     Dates: start: 20110116
  3. STEROIDS NOS [Concomitant]
  4. REMICADE [Suspect]
     Route: 042
     Dates: start: 20101201
  5. REMICADE [Suspect]
     Route: 042
     Dates: start: 20101213
  6. REMICADE [Suspect]
     Indication: CROHN'S DISEASE
     Route: 042
     Dates: start: 20101001
  7. REMICADE [Suspect]
     Route: 042
     Dates: start: 20110114
  8. REMICADE [Suspect]
     Indication: COLITIS ULCERATIVE
     Route: 042
     Dates: start: 20101201
  9. REMICADE [Suspect]
     Route: 042
     Dates: start: 20110114
  10. REMICADE [Suspect]
     Route: 042
     Dates: start: 20101213

REACTIONS (28)
  - DRY GANGRENE [None]
  - ASCITES [None]
  - PNEUMOTHORAX [None]
  - STAPHYLOCOCCAL INFECTION [None]
  - MALAISE [None]
  - BRAIN HERNIATION [None]
  - PLEURAL EFFUSION [None]
  - ILEUS [None]
  - RESPIRATORY FAILURE [None]
  - SEPTIC EMBOLUS [None]
  - PNEUMONIA [None]
  - DISSEMINATED INTRAVASCULAR COAGULATION [None]
  - ANAEMIA [None]
  - THROMBOCYTOSIS [None]
  - CEREBROVASCULAR ACCIDENT [None]
  - CYTOMEGALOVIRUS COLITIS [None]
  - ASPERGILLOSIS [None]
  - INTESTINAL PERFORATION [None]
  - SPLENIC INFARCTION [None]
  - PULMONARY EMBOLISM [None]
  - THROMBOCYTOPENIA [None]
  - DEPRESSION [None]
  - CROHN'S DISEASE [None]
  - CANDIDIASIS [None]
  - CYTOMEGALOVIRUS VIRAEMIA [None]
  - DEEP VEIN THROMBOSIS [None]
  - HYPERTENSION [None]
  - HERPES VIRUS INFECTION [None]
